FAERS Safety Report 8453748-6 (Version None)
Quarter: 2012Q2

REPORT INFORMATION
  Report Type: 
  Country: None (occurrence: None)
  Receive Date: 20120620
  Receipt Date: 20120607
  Transmission Date: 20120825
  Serious: No
  Sender: FDA-Public Use
  Company Number: US-ASTRAZENECA-2012SE38576

PATIENT
  Age: 61 Year
  Sex: Female

DRUGS (4)
  1. LYRICA [Concomitant]
  2. BENTYLOL [Concomitant]
  3. KLONOPIN [Concomitant]
  4. PRILOSEC [Suspect]
     Dosage: AS NEEDED
     Route: 048

REACTIONS (4)
  - MALAISE [None]
  - DRUG INEFFECTIVE [None]
  - HYPERCHLORHYDRIA [None]
  - ABDOMINAL DISTENSION [None]
